FAERS Safety Report 20317221 (Version 1)
Quarter: 2022Q1

REPORT INFORMATION
  Report Type: Spontaneous
  Country: US (occurrence: US)
  Receive Date: 20220110
  Receipt Date: 20220110
  Transmission Date: 20220423
  Serious: No
  Sender: FDA-Public Use
  Company Number: US-GLENMARK PHARMACEUTICALS-2021GMK068975

PATIENT

DRUGS (1)
  1. COLESEVELAM HYDROCHLORIDE [Suspect]
     Active Substance: COLESEVELAM HYDROCHLORIDE
     Indication: Product used for unknown indication
     Dosage: 625 MILLIGRAM, BID (1 TABLET IN THE MORNING AND 1 TABLET AT DINNER TIME)
     Route: 048

REACTIONS (6)
  - Tongue disorder [Unknown]
  - Tongue discomfort [Unknown]
  - Throat irritation [Unknown]
  - Product use issue [Unknown]
  - Product use complaint [Unknown]
  - Wrong technique in product usage process [Unknown]
